FAERS Safety Report 9742332 (Version 1)
Quarter: 2013Q4

REPORT INFORMATION
  Report Type: Spontaneous
  Country: US (occurrence: US)
  Receive Date: 20131210
  Receipt Date: 20131210
  Transmission Date: 20140711
  Serious: No
  Sender: FDA-Public Use
  Company Number: US-ENDO PHARMACEUTICALS INC.-SPIR20110012

PATIENT
  Sex: Female

DRUGS (2)
  1. SPIRONOLACTONE TABLETS 25MG [Suspect]
     Indication: PRODUCT USED FOR UNKNOWN INDICATION
     Dosage: UNK
     Route: 048
     Dates: start: 201108
  2. SPIRONOLACTONE TABLETS 25MG [Suspect]
     Dosage: UNK
     Route: 048
     Dates: start: 201108

REACTIONS (3)
  - Constipation [Unknown]
  - Flatulence [Unknown]
  - Fatigue [Unknown]
